FAERS Safety Report 11591335 (Version 1)
Quarter: 2015Q4

REPORT INFORMATION
  Report Type: Spontaneous
  Country: TR (occurrence: TR)
  Receive Date: 20151004
  Receipt Date: 20151004
  Transmission Date: 20160304
  Serious: Yes (Hospitalization)
  Sender: FDA-Public Use
  Company Number: TR-PERRIGO-15TR010006

PATIENT
  Age: 12 Month
  Sex: Male

DRUGS (5)
  1. ACETAMINOPHEN. [Suspect]
     Active Substance: ACETAMINOPHEN
     Indication: PROCEDURAL PAIN
     Dosage: 125 MG, Q6H
     Route: 048
  2. TRAMADOL. [Concomitant]
     Active Substance: TRAMADOL
     Indication: PROCEDURAL PAIN
     Dosage: 5 MG, SINGLE
     Route: 042
  3. PETHIDINE [Concomitant]
     Active Substance: MEPERIDINE
     Indication: PROCEDURAL PAIN
     Dosage: 5 MG, SINGLE
     Route: 042
  4. TRAMADOL. [Concomitant]
     Active Substance: TRAMADOL
     Dosage: 15 MG, SINGLE
     Route: 065
  5. ACETAMINOPHEN 120MG 579 [Suspect]
     Active Substance: ACETAMINOPHEN
     Indication: PROCEDURAL PAIN
     Dosage: 240 MG Q6H
     Route: 054

REACTIONS (7)
  - Hypoglycaemia [Recovered/Resolved]
  - Seizure [Recovered/Resolved]
  - Toxicity to various agents [Recovered/Resolved]
  - Acute hepatic failure [Recovered/Resolved]
  - Diarrhoea [Recovered/Resolved]
  - Hepatic encephalopathy [Recovered/Resolved]
  - Haematemesis [Recovered/Resolved]
